FAERS Safety Report 6315342-2 (Version None)
Quarter: 2009Q3

REPORT INFORMATION
  Report Type: 
  Country: None (occurrence: None)
  Receive Date: 20090819
  Receipt Date: 20090811
  Transmission Date: 20100115
  Serious: Yes (Death)
  Sender: FDA-Public Use
  Company Number: IN-PFIZER INC-2009254772

PATIENT

DRUGS (2)
  1. SUTENT [Suspect]
     Indication: METASTATIC RENAL CELL CARCINOMA
     Dosage: 50 MG, 1X/DAY, EVERY DAY
     Route: 048
  2. SUTENT [Suspect]
     Dosage: 25 MG, 1X/DAY, EVERY DAY
     Route: 048

REACTIONS (1)
  - DEATH [None]
